FAERS Safety Report 10423846 (Version 1)
Quarter: 2014Q3

REPORT INFORMATION
  Report Type: Spontaneous
  Country: US (occurrence: US)
  Receive Date: 20140902
  Receipt Date: 20140902
  Transmission Date: 20150326
  Serious: Yes (Other)
  Sender: FDA-Public Use
  Company Number: US-BAXTER-2014BAX051114

PATIENT
  Age: 76 Year
  Sex: Male

DRUGS (7)
  1. PIPERACILLIN [Suspect]
     Active Substance: PIPERACILLIN
     Indication: SMALL INTESTINAL OBSTRUCTION
  2. TAZOBACTAM [Suspect]
     Active Substance: TAZOBACTAM
     Indication: PNEUMONIA ASPIRATION
     Route: 065
  3. TAZOBACTAM [Suspect]
     Active Substance: TAZOBACTAM
     Indication: SMALL INTESTINAL OBSTRUCTION
  4. VANCOMYCIN INJECTION, USP [Suspect]
     Active Substance: VANCOMYCIN
     Indication: PNEUMONIA ASPIRATION
     Route: 042
  5. PIPERACILLIN [Suspect]
     Active Substance: PIPERACILLIN
     Indication: PNEUMONIA ASPIRATION
     Route: 065
  6. LEVOFLOXACIN [Suspect]
     Active Substance: LEVOFLOXACIN
     Indication: PNEUMONIA ASPIRATION
     Route: 048
  7. LEVOFLOXACIN [Suspect]
     Active Substance: LEVOFLOXACIN
     Indication: SMALL INTESTINAL OBSTRUCTION

REACTIONS (2)
  - Stasis dermatitis [Recovered/Resolved]
  - Oedema peripheral [Recovered/Resolved]
